FAERS Safety Report 9643670 (Version 3)
Quarter: 2013Q4

REPORT INFORMATION
  Report Type: Report from Study
  Country: AU (occurrence: AU)
  Receive Date: 20131024
  Receipt Date: 20131112
  Transmission Date: 20140711
  Serious: Yes (Hospitalization, Other)
  Sender: FDA-Public Use
  Company Number: PHHY2011AU44037

PATIENT
  Age: 38 Year
  Sex: Male

DRUGS (12)
  1. CLOZARIL [Suspect]
     Indication: SCHIZOPHRENIA
     Dosage: 750 MG, UNK
     Dates: start: 19960821, end: 19980119
  2. CLOZARIL [Suspect]
     Dosage: 225 UNK, UNK
     Dates: start: 20110414, end: 20110602
  3. OLANZAPINE [Concomitant]
     Dosage: 10 MG, UNK
  4. OLANZAPINE [Concomitant]
     Dosage: 80 MG, UNK
     Dates: end: 201105
  5. SODIUM VALPROATE [Concomitant]
     Dosage: UNK UKN, UNK
     Dates: end: 2011
  6. SODIUM VALPROATE [Concomitant]
     Dosage: UNK UKN, UNK
     Dates: start: 201105
  7. AMISULPRIDE [Concomitant]
     Dosage: 900 MG, (400 MG MANE AND 500 MG NOCTE)
     Dates: start: 201105
  8. AMISULPRIDE [Concomitant]
     Dosage: 300 MG, BID
     Dates: start: 20110629
  9. STELAZINE [Concomitant]
     Dosage: UNK UKN, UNK
  10. CHLORPROMAZINE [Concomitant]
     Dosage: UNK UKN, UNK
  11. RISPERIDONE [Concomitant]
     Dosage: UNK UKN, UNK
  12. SERTRALINE [Concomitant]
     Dosage: 150 MG, UNK
     Dates: start: 201104

REACTIONS (17)
  - Gait disturbance [Unknown]
  - Myocarditis [Unknown]
  - Pyrexia [Unknown]
  - Blood creatine phosphokinase increased [Unknown]
  - Homicidal ideation [Unknown]
  - Mental impairment [Unknown]
  - Hypertension [Unknown]
  - Pneumonia [Unknown]
  - Tachyphrenia [Unknown]
  - Insomnia [Unknown]
  - Wheezing [Unknown]
  - Upper respiratory tract infection [Unknown]
  - Dysphonia [Unknown]
  - Drug ineffective [Unknown]
  - Cough [Unknown]
  - Weight increased [Unknown]
  - Musculoskeletal pain [Unknown]
